FAERS Safety Report 9694510 (Version 1)
Quarter: 2013Q4

REPORT INFORMATION
  Report Type: Spontaneous
  Country: US (occurrence: US)
  Receive Date: 20131118
  Receipt Date: 20131118
  Transmission Date: 20140711
  Serious: Yes (Other)
  Sender: FDA-Public Use
  Company Number: US-RB-060565-13

PATIENT
  Age: 38 Year
  Sex: Female

DRUGS (1)
  1. SUBOXONE TABLET [Suspect]
     Indication: DRUG DEPENDENCE
     Dosage: WEANED BY HER PHYSICIAN, UNKNOWN DAILY DOSES
     Route: 060
     Dates: start: 2004, end: 2004

REACTIONS (4)
  - Wrong technique in drug usage process [Recovered/Resolved]
  - Mental disorder [Recovered/Resolved]
  - Feeling of body temperature change [Recovered/Resolved]
  - Hyperhidrosis [Recovered/Resolved]
